FAERS Safety Report 14342324 (Version 1)
Quarter: 2018Q1

REPORT INFORMATION
  Report Type: Spontaneous
  Country: US (occurrence: US)
  Receive Date: 20180102
  Receipt Date: 20180102
  Transmission Date: 20180509
  Serious: No
  Sender: FDA-Public Use
  Company Number: US-GLAXOSMITHKLINE-US2017GSK201275

PATIENT
  Sex: Male

DRUGS (4)
  1. TRILEPTAL [Suspect]
     Active Substance: OXCARBAZEPINE
  2. VIMPAT [Suspect]
     Active Substance: LACOSAMIDE
     Dosage: 100 MG, BID
  3. MELATONIN [Concomitant]
     Active Substance: MELATONIN
     Indication: INSOMNIA
  4. LAMICTAL [Suspect]
     Active Substance: LAMOTRIGINE
     Dosage: 250 MG, BID

REACTIONS (9)
  - Epileptic aura [Unknown]
  - Dyskinesia [Unknown]
  - Emotional disorder [Unknown]
  - Mental status changes [Unknown]
  - Trismus [Unknown]
  - Insomnia [Recovering/Resolving]
  - Somnolence [Unknown]
  - Alcohol abuse [Unknown]
  - Feeling abnormal [Unknown]
